FAERS Safety Report 8237433-1 (Version None)
Quarter: 2012Q1

REPORT INFORMATION
  Report Type: 
  Country: None (occurrence: None)
  Receive Date: 20120327
  Receipt Date: 20120322
  Transmission Date: 20120608
  Serious: Yes (Hospitalization, Other)
  Sender: FDA-Public Use
  Company Number: US-BAYER-2011-111119

PATIENT
  Age: 38 Year
  Sex: Female

DRUGS (1)
  1. DROSPIRENONE AND ETHINYL ESTRADIOL [Suspect]
     Dosage: UNK
     Dates: start: 20071101, end: 20081001

REACTIONS (7)
  - PULMONARY EMBOLISM [None]
  - FATIGUE [None]
  - DEEP VEIN THROMBOSIS [None]
  - ERYTHEMA [None]
  - INJURY [None]
  - OEDEMA PERIPHERAL [None]
  - THROMBOSIS [None]
